FAERS Safety Report 4384771-9 (Version None)
Quarter: 2004Q2

REPORT INFORMATION
  Report Type: 
  Country: None (occurrence: None)
  Receive Date: 20040623
  Receipt Date: 20040623
  Transmission Date: 20050107
  Serious: Yes (Disabling, Other)
  Sender: FDA-Public Use
  Company Number: None

PATIENT
  Sex: Female
  Weight: 74.8435 kg

DRUGS (1)
  1. EFFEXOR XR [Suspect]
     Dosage: ONE TABLET DAILY ORAL
     Route: 048
     Dates: start: 20020116, end: 20040729

REACTIONS (9)
  - ASTHENIA [None]
  - DRUG DEPENDENCE [None]
  - DRUG WITHDRAWAL SYNDROME [None]
  - DYSGEUSIA [None]
  - MEMORY IMPAIRMENT [None]
  - NERVOUS SYSTEM DISORDER [None]
  - PAIN [None]
  - VISUAL ACUITY REDUCED [None]
  - WEIGHT INCREASED [None]
